FAERS Safety Report 4558457-1 (Version None)
Quarter: 2005Q1

REPORT INFORMATION
  Report Type: 
  Country: None (occurrence: None)
  Receive Date: 20050119
  Receipt Date: 20041217
  Transmission Date: 20050727
  Serious: Yes (Hospitalization)
  Sender: FDA-Public Use
  Company Number: 20041200517

PATIENT
  Age: 75 Year
  Sex: Male
  Weight: 93 kg

DRUGS (1)
  1. PHENYTOIN, BAXTER, 5 ML (250 MG) [Suspect]
     Indication: CONVULSION PROPHYLAXIS
     Dates: start: 20041211

REACTIONS (3)
  - ANTICONVULSANT DRUG LEVEL BELOW THERAPEUTIC [None]
  - CONVULSION [None]
  - PHARMACEUTICAL PRODUCT COMPLAINT [None]
